FAERS Safety Report 7412416-X (Version None)
Quarter: 2011Q2

REPORT INFORMATION
  Report Type: 
  Country: None (occurrence: None)
  Receive Date: 20110408
  Receipt Date: 20110408
  Transmission Date: 20111010
  Serious: Yes (Other)
  Sender: FDA-Public Use
  Company Number: None

PATIENT
  Age: 75 Year
  Sex: Female
  Weight: 61.6892 kg

DRUGS (1)
  1. FLUDROCORTISONE 0.1 MG BARR [Suspect]
     Indication: ORTHOSTATIC HYPOTENSION
     Dosage: 1 TABLET EVERY OTHER DAY PO
     Route: 048
     Dates: start: 20110103, end: 20110406

REACTIONS (5)
  - EAR PAIN [None]
  - SINUS DISORDER [None]
  - HYPOACUSIS [None]
  - EYE PAIN [None]
  - SINUS HEADACHE [None]
